FAERS Safety Report 13611883 (Version 2)
Quarter: 2017Q2

REPORT INFORMATION
  Report Type: Spontaneous
  Country: PE (occurrence: PE)
  Receive Date: 20170605
  Receipt Date: 20170609
  Transmission Date: 20170830
  Serious: Yes (Other)
  Sender: FDA-Public Use
  Company Number: PE-ROCHE-1942926

PATIENT
  Age: 64 Year
  Sex: Female

DRUGS (2)
  1. XOLAIR [Suspect]
     Active Substance: OMALIZUMAB
     Indication: PRODUCT USED FOR UNKNOWN INDICATION
     Route: 065
     Dates: start: 201703
  2. XOLAIR [Suspect]
     Active Substance: OMALIZUMAB
     Dosage: 3RD DOSE
     Route: 065

REACTIONS (2)
  - Gait disturbance [Unknown]
  - Muscular weakness [Unknown]
